FAERS Safety Report 7897510-1 (Version None)
Quarter: 2011Q4

REPORT INFORMATION
  Report Type: 
  Country: None (occurrence: None)
  Receive Date: 20111107
  Receipt Date: 20111027
  Transmission Date: 20120403
  Serious: Yes (Other)
  Sender: FDA-Public Use
  Company Number: US-JNJFOC-20111012220

PATIENT
  Sex: Female
  Weight: 81.19 kg

DRUGS (9)
  1. ULTRAM [Suspect]
     Indication: PAIN
     Dosage: 50-100MG/TABLET/50 MG/1-2 TABLETS 3-4 TIMES PER DAY/ORAL
  2. ASPIRIN [Concomitant]
     Indication: CARDIOVASCULAR EVENT PROPHYLAXIS
     Route: 048
  3. ASPIRIN [Concomitant]
     Indication: INFLAMMATION
     Route: 048
  4. REMICADE [Suspect]
     Route: 042
     Dates: start: 20080101, end: 20110701
  5. SYNTHROID [Concomitant]
     Indication: AUTOIMMUNE THYROIDITIS
     Route: 048
  6. REMICADE [Suspect]
     Indication: RHEUMATOID ARTHRITIS
     Route: 042
     Dates: end: 20080101
  7. METHOTREXATE [Concomitant]
     Indication: RHEUMATOID ARTHRITIS
     Route: 058
     Dates: start: 20100101
  8. PRILOSEC [Concomitant]
     Indication: GASTROOESOPHAGEAL REFLUX DISEASE
     Route: 048
     Dates: start: 20070101
  9. IBUPROFEN [Concomitant]
     Indication: INFLAMMATION
     Route: 048

REACTIONS (18)
  - BURNING SENSATION [None]
  - FLUID RETENTION [None]
  - WEIGHT DECREASED [None]
  - FALL [None]
  - DRUG INEFFECTIVE [None]
  - PRURITUS [None]
  - LETHARGY [None]
  - OSTEOPENIA [None]
  - OSTEOPOROSIS [None]
  - ANKLE FRACTURE [None]
  - SKIN LESION [None]
  - BONE LOSS [None]
  - DEVICE FAILURE [None]
  - WEIGHT INCREASED [None]
  - RESTLESSNESS [None]
  - LOOSE TOOTH [None]
  - MALAISE [None]
  - INSOMNIA [None]
